FAERS Safety Report 8342003-0 (Version None)
Quarter: 2012Q2

REPORT INFORMATION
  Report Type: 
  Country: None (occurrence: None)
  Receive Date: 20120507
  Receipt Date: 20120502
  Transmission Date: 20120825
  Serious: Yes (Death, Hospitalization)
  Sender: FDA-Public Use
  Company Number: VE-ABBOTT-12P-178-0920330-00

PATIENT
  Sex: Male
  Weight: 56 kg

DRUGS (1)
  1. HUMIRA [Suspect]
     Indication: ANKYLOSING SPONDYLITIS
     Route: 058
     Dates: start: 20091027, end: 20120304

REACTIONS (6)
  - INFLUENZA [None]
  - HEPATITIS [None]
  - PNEUMONIA [None]
  - MULTI-ORGAN FAILURE [None]
  - INCREASED UPPER AIRWAY SECRETION [None]
  - VIRAL INFECTION [None]
